FAERS Safety Report 15710119 (Version 1)
Quarter: 2018Q4

REPORT INFORMATION
  Report Type: Report from Study
  Country: US (occurrence: US)
  Receive Date: 20181211
  Receipt Date: 20181211
  Transmission Date: 20190205
  Serious: No
  Sender: FDA-Public Use
  Company Number: US-INCYTE CORPORATION-2018IN011322

PATIENT

DRUGS (1)
  1. JAKAFI [Suspect]
     Active Substance: RUXOLITINIB
     Indication: MYELOFIBROSIS
     Route: 065

REACTIONS (5)
  - Pruritus [Unknown]
  - Night sweats [Unknown]
  - Bone pain [Unknown]
  - Herpes zoster [Unknown]
  - Nasopharyngitis [Recovering/Resolving]
